FAERS Safety Report 25617927 (Version 1)
Quarter: 2025Q3

REPORT INFORMATION
  Report Type: Spontaneous
  Country: US (occurrence: US)
  Receive Date: 20250729
  Receipt Date: 20250729
  Transmission Date: 20251020
  Serious: Yes (Hospitalization)
  Sender: CATALYST PHARMA
  Company Number: US-CATALYST PHARMACEUTICALS, INC-US-CATA-25-01061

PATIENT
  Sex: Female

DRUGS (1)
  1. FIRDAPSE [Suspect]
     Active Substance: AMIFAMPRIDINE PHOSPHATE
     Indication: Myasthenic syndrome
     Route: 048
     Dates: start: 20220805

REACTIONS (4)
  - Hospitalisation [Unknown]
  - Hospitalisation [Unknown]
  - Hospitalisation [Unknown]
  - Malaise [Unknown]

NARRATIVE: CASE EVENT DATE: 20250101
